FAERS Safety Report 10170879 (Version 3)
Quarter: 2014Q3

REPORT INFORMATION
  Report Type: Spontaneous
  Country: US (occurrence: US)
  Receive Date: 20140514
  Receipt Date: 20140710
  Transmission Date: 20150326
  Serious: Yes (Death, Congenital Anomaly)
  Sender: FDA-Public Use
  Company Number: US-009507513-1405USA004262

PATIENT

DRUGS (5)
  1. NORCO [Concomitant]
     Active Substance: ACETAMINOPHEN\HYDROCODONE BITARTRATE
     Route: 064
  2. TYLENOL [Concomitant]
     Active Substance: ACETAMINOPHEN
     Dosage: 325 MG ORAL TABLET, 1 TABLET AS NEEDED (EVERY 6 HRS)
     Route: 064
  3. NEXPLANON [Suspect]
     Active Substance: ETONOGESTREL
     Dosage: 1 SINGLE ROD
     Route: 064
     Dates: start: 20140116, end: 20140303
  4. METHERGINE [Concomitant]
     Active Substance: METHYLERGONOVINE MALEATE
     Route: 064
  5. IRON (UNSPECIFIED) (+) MINERALS (UNSPECIFIED) (+) VITAMINS (UNSPECIFIE [Concomitant]
     Active Substance: IRON\MINERALS\VITAMINS
     Route: 064

REACTIONS (12)
  - Congenital infection [Fatal]
  - Foetal exposure during pregnancy [Recovered/Resolved]
  - Heart valve incompetence [Fatal]
  - Ventricular hypertrophy [Fatal]
  - Umbilical cord vascular disorder [Fatal]
  - Renal aplasia [Fatal]
  - Gastrointestinal disorder congenital [Fatal]
  - Pericardial effusion [Fatal]
  - Dilatation atrial [Fatal]
  - Multiple congenital abnormalities [Fatal]
  - Congenital pulmonary artery anomaly [Fatal]
  - Congenital cardiovascular anomaly [Fatal]

NARRATIVE: CASE EVENT DATE: 2014
